FAERS Safety Report 7236503-4 (Version None)
Quarter: 2011Q1

REPORT INFORMATION
  Report Type: 
  Country: None (occurrence: None)
  Receive Date: 20110120
  Receipt Date: 20110112
  Transmission Date: 20110831
  Serious: Yes (Hospitalization)
  Sender: FDA-Public Use
  Company Number: FR-PFIZER INC-2011012150

PATIENT
  Age: 76 Year
  Sex: Male

DRUGS (6)
  1. CIFLOX [Suspect]
     Dosage: UNK
     Route: 048
     Dates: start: 20100322, end: 20100330
  2. INIPOMP [Suspect]
     Dosage: 40 MG, 1X/DAY
     Route: 048
     Dates: end: 20060607
  3. DIAMICRON [Suspect]
     Dosage: UNK
     Route: 048
     Dates: end: 20060607
  4. GLUCOPHAGE [Suspect]
     Dosage: 850 MG, 3X/DAY
     Route: 048
     Dates: end: 20060607
  5. CARDENSIEL [Suspect]
     Dosage: UNK
     Route: 048
     Dates: end: 20060607
  6. ASPEGIC 325 [Suspect]
     Dosage: 100 MG, UNK
     Route: 048
     Dates: end: 20060607

REACTIONS (1)
  - CHOLANGITIS [None]
